FAERS Safety Report 5100013-0 (Version None)
Quarter: 2006Q3

REPORT INFORMATION
  Report Type: 
  Country: None (occurrence: None)
  Receive Date: 20060906
  Receipt Date: 20060906
  Transmission Date: 20061208
  Serious: Yes (Hospitalization)
  Sender: FDA-Public Use
  Company Number: None

PATIENT
  Sex: Male

DRUGS (9)
  1. GLEEVEC [Suspect]
     Indication: GLIOBLASTOMA MULTIFORME
     Dosage: 500 MG QD
     Dates: start: 20060627, end: 20060722
  2. HYDROXYUREA [Suspect]
     Dosage: 500 MG BID
  3. DECADRON [Concomitant]
  4. DILANTIN [Concomitant]
  5. PROTONIX [Concomitant]
  6. SYNTHROID [Concomitant]
  7. SENOKOT [Concomitant]
  8. TRICOR [Concomitant]
  9. MEPRON [Concomitant]

REACTIONS (9)
  - BODY TEMPERATURE INCREASED [None]
  - DEPRESSED LEVEL OF CONSCIOUSNESS [None]
  - GRAND MAL CONVULSION [None]
  - HYPOXIA [None]
  - LUNG DISORDER [None]
  - METASTASES TO LUNG [None]
  - PLEURAL EFFUSION [None]
  - POLYP [None]
  - RECTAL HAEMORRHAGE [None]
